FAERS Safety Report 13376521 (Version 1)
Quarter: 2017Q1

REPORT INFORMATION
  Report Type: Spontaneous
  Country: US (occurrence: US)
  Receive Date: 20170327
  Receipt Date: 20170327
  Transmission Date: 20170429
  Serious: Yes (Life-Threatening)
  Sender: FDA-Public Use
  Company Number: None

PATIENT
  Age: 27 Year
  Sex: Female
  Weight: 65.38 kg

DRUGS (4)
  1. LEXAPRO [Concomitant]
     Active Substance: ESCITALOPRAM OXALATE
  2. VITAMIN D [Concomitant]
     Active Substance: CHOLECALCIFEROL
  3. SKYLA [Suspect]
     Active Substance: LEVONORGESTREL
  4. MIRENA [Concomitant]
     Active Substance: LEVONORGESTREL

REACTIONS (8)
  - Musculoskeletal pain [None]
  - Exposure during pregnancy [None]
  - Discomfort [None]
  - Ectopic pregnancy [None]
  - Fallopian tube perforation [None]
  - Internal haemorrhage [None]
  - Abdominal distension [None]
  - Pregnancy with contraceptive device [None]

NARRATIVE: CASE EVENT DATE: 20170315
